FAERS Safety Report 6531863-1 (Version None)
Quarter: 2010Q1

REPORT INFORMATION
  Report Type: 
  Country: None (occurrence: None)
  Receive Date: 20100108
  Receipt Date: 20100105
  Transmission Date: 20100710
  Serious: Yes (Death, Hospitalization)
  Sender: FDA-Public Use
  Company Number: US-ASTRAZENECA-2010SE00371

PATIENT
  Age: 41 Year
  Sex: Female

DRUGS (8)
  1. QUETIAPINE FUMARATE [Suspect]
     Route: 048
  2. ACETAMINOPHEN/DIPHENHYDRAMINE [Suspect]
     Route: 048
  3. OXYMORPHONE [Suspect]
     Route: 048
  4. VENLAFAXINE [Suspect]
     Route: 048
  5. SALICYLATE [Suspect]
     Route: 048
  6. ZOLPIDEM TARTRATE [Suspect]
     Route: 048
  7. HYDROXYZINE [Suspect]
     Route: 048
  8. CLONAZEPAM [Suspect]
     Route: 048

REACTIONS (7)
  - ACIDOSIS [None]
  - COMPLETED SUICIDE [None]
  - DRUG TOXICITY [None]
  - HYPOTENSION [None]
  - MULTI-ORGAN FAILURE [None]
  - PANCREATITIS [None]
  - PNEUMONIA ASPIRATION [None]
